FAERS Safety Report 7244978-X (Version None)
Quarter: 2011Q1

REPORT INFORMATION
  Report Type: 
  Country: None (occurrence: None)
  Receive Date: 20110126
  Receipt Date: 20110118
  Transmission Date: 20110831
  Serious: Yes (Other)
  Sender: FDA-Public Use
  Company Number: US-TEVA-263922USA

PATIENT
  Sex: Male

DRUGS (3)
  1. METOPROLOL [Suspect]
  2. PANTOPRAZOLE SODIUM [Suspect]
     Route: 048
     Dates: start: 20091001
  3. LOSARTAN [Suspect]

REACTIONS (4)
  - HEADACHE [None]
  - ABDOMINAL PAIN UPPER [None]
  - CORONARY ARTERY OCCLUSION [None]
  - DRUG INEFFECTIVE [None]
